FAERS Safety Report 25601381 (Version 1)
Quarter: 2025Q3

REPORT INFORMATION
  Report Type: Spontaneous
  Country: US (occurrence: US)
  Receive Date: 20250724
  Receipt Date: 20250724
  Transmission Date: 20251021
  Serious: Yes (Death)
  Sender: MYLAN
  Company Number: US-MYLANLABS-2025M1061342

PATIENT
  Age: 26 Year
  Sex: Male

DRUGS (40)
  1. DEXAMETHASONE [Suspect]
     Active Substance: DEXAMETHASONE
     Indication: Drug therapy
  2. DEXAMETHASONE [Suspect]
     Active Substance: DEXAMETHASONE
     Route: 065
  3. DEXAMETHASONE [Suspect]
     Active Substance: DEXAMETHASONE
     Route: 065
  4. DEXAMETHASONE [Suspect]
     Active Substance: DEXAMETHASONE
  5. MIDAZOLAM [Suspect]
     Active Substance: MIDAZOLAM
     Indication: Epilepsy
  6. MIDAZOLAM [Suspect]
     Active Substance: MIDAZOLAM
     Route: 065
  7. MIDAZOLAM [Suspect]
     Active Substance: MIDAZOLAM
     Route: 065
  8. MIDAZOLAM [Suspect]
     Active Substance: MIDAZOLAM
  9. PHENOBARBITAL [Suspect]
     Active Substance: PHENOBARBITAL
     Indication: Epilepsy
  10. PHENOBARBITAL [Suspect]
     Active Substance: PHENOBARBITAL
     Route: 065
  11. PHENOBARBITAL [Suspect]
     Active Substance: PHENOBARBITAL
     Route: 065
  12. PHENOBARBITAL [Suspect]
     Active Substance: PHENOBARBITAL
  13. METHYLENE BLUE [Suspect]
     Active Substance: METHYLENE BLUE
     Indication: Shock
  14. METHYLENE BLUE [Suspect]
     Active Substance: METHYLENE BLUE
     Route: 065
  15. METHYLENE BLUE [Suspect]
     Active Substance: METHYLENE BLUE
     Route: 065
  16. METHYLENE BLUE [Suspect]
     Active Substance: METHYLENE BLUE
  17. ACETYLCYSTEINE [Suspect]
     Active Substance: ACETYLCYSTEINE
     Indication: Drug therapy
  18. ACETYLCYSTEINE [Suspect]
     Active Substance: ACETYLCYSTEINE
     Route: 065
  19. ACETYLCYSTEINE [Suspect]
     Active Substance: ACETYLCYSTEINE
     Route: 065
  20. ACETYLCYSTEINE [Suspect]
     Active Substance: ACETYLCYSTEINE
  21. DEFEROXAMINE [Suspect]
     Active Substance: DEFEROXAMINE MESYLATE
     Indication: Drug therapy
  22. DEFEROXAMINE [Suspect]
     Active Substance: DEFEROXAMINE MESYLATE
     Route: 065
  23. DEFEROXAMINE [Suspect]
     Active Substance: DEFEROXAMINE MESYLATE
     Route: 065
  24. DEFEROXAMINE [Suspect]
     Active Substance: DEFEROXAMINE MESYLATE
  25. VITAMIN C [Suspect]
     Active Substance: ASCORBIC ACID
     Indication: Drug therapy
  26. VITAMIN C [Suspect]
     Active Substance: ASCORBIC ACID
     Route: 065
  27. VITAMIN C [Suspect]
     Active Substance: ASCORBIC ACID
     Route: 065
  28. VITAMIN C [Suspect]
     Active Substance: ASCORBIC ACID
  29. VITAMIN E [Suspect]
     Active Substance: .ALPHA.-TOCOPHEROL
     Indication: Drug therapy
  30. VITAMIN E [Suspect]
     Active Substance: .ALPHA.-TOCOPHEROL
     Route: 065
  31. VITAMIN E [Suspect]
     Active Substance: .ALPHA.-TOCOPHEROL
     Route: 065
  32. VITAMIN E [Suspect]
     Active Substance: .ALPHA.-TOCOPHEROL
  33. ASPIRIN [Suspect]
     Active Substance: ASPIRIN
     Indication: Drug therapy
  34. ASPIRIN [Suspect]
     Active Substance: ASPIRIN
     Route: 065
  35. ASPIRIN [Suspect]
     Active Substance: ASPIRIN
     Route: 065
  36. ASPIRIN [Suspect]
     Active Substance: ASPIRIN
  37. SODIUM BICARBONATE [Suspect]
     Active Substance: SODIUM BICARBONATE
     Indication: Metabolic acidosis
  38. SODIUM BICARBONATE [Suspect]
     Active Substance: SODIUM BICARBONATE
     Route: 065
  39. SODIUM BICARBONATE [Suspect]
     Active Substance: SODIUM BICARBONATE
     Route: 065
  40. SODIUM BICARBONATE [Suspect]
     Active Substance: SODIUM BICARBONATE

REACTIONS (1)
  - Drug ineffective [Fatal]
